FAERS Safety Report 6014881-1 (Version None)
Quarter: 2008Q4

REPORT INFORMATION
  Report Type: 
  Country: None (occurrence: None)
  Receive Date: 20081219
  Receipt Date: 20081205
  Transmission Date: 20090506
  Serious: No
  Sender: FDA-Public Use
  Company Number: US-B.I. PHARMACEUTICALS,INC./RIDGEFIELD-2008-BP-18357BP

PATIENT
  Age: 79 Year
  Sex: Female

DRUGS (3)
  1. MICARDIS [Suspect]
     Indication: HYPERTENSION
     Dosage: 40MG
     Route: 048
     Dates: start: 20081130
  2. SYNTHROID [Concomitant]
     Indication: THYROID DISORDER
  3. ASA -BABY [Concomitant]

REACTIONS (3)
  - BLOOD PRESSURE INCREASED [None]
  - COUGH [None]
  - FLUSHING [None]
